FAERS Safety Report 8219889-3 (Version None)
Quarter: 2012Q1

REPORT INFORMATION
  Report Type: 
  Country: None (occurrence: None)
  Receive Date: 20120319
  Receipt Date: 20120308
  Transmission Date: 20120608
  Serious: Yes (Hospitalization)
  Sender: FDA-Public Use
  Company Number: BE-ASTRAZENECA-2012SE16593

PATIENT
  Age: 72 Year
  Sex: Female

DRUGS (4)
  1. ZESTORETIC [Suspect]
     Route: 048
  2. CRESTOR [Suspect]
     Route: 048
     Dates: start: 20110101
  3. AINS [Concomitant]
  4. DIURETICS [Concomitant]

REACTIONS (2)
  - INTESTINAL INFARCTION [None]
  - COLITIS ISCHAEMIC [None]
